FAERS Safety Report 16170643 (Version 1)
Quarter: 2019Q2

REPORT INFORMATION
  Report Type: Spontaneous
  Country: AT (occurrence: AT)
  Receive Date: 20190408
  Receipt Date: 20190408
  Transmission Date: 20190711
  Serious: Yes (Other)
  Sender: FDA-Public Use
  Company Number: AT-MYLANLABS-2019M1031359

PATIENT
  Age: 60 Year
  Sex: Female

DRUGS (5)
  1. TENOFOVIR [Suspect]
     Active Substance: TENOFOVIR
     Indication: HEPATITIS B
     Dosage: UNK
     Route: 065
  2. SOFOSBUVIR [Concomitant]
     Active Substance: SOFOSBUVIR
     Dosage: UNK
  3. SIMEPREVIR [Concomitant]
     Active Substance: SIMEPREVIR
     Dosage: UNK
  4. ENTECAVIR. [Concomitant]
     Active Substance: ENTECAVIR
     Dosage: UNK
  5. DACLATASVIR. [Concomitant]
     Active Substance: DACLATASVIR
     Dosage: UNK

REACTIONS (1)
  - Hyperbilirubinaemia [Unknown]
